FAERS Safety Report 23737574 (Version 1)
Quarter: 2024Q2

REPORT INFORMATION
  Report Type: Report from Study
  Country: ID (occurrence: None)
  Receive Date: 20240412
  Receipt Date: 20240412
  Transmission Date: 20240716
  Serious: Yes (Death)
  Sender: FDA-Public Use
  Company Number: 2020SF32904

PATIENT
  Age: 18804 Day
  Sex: Female

DRUGS (1)
  1. IMFINZI [Suspect]
     Active Substance: DURVALUMAB
     Indication: Non-small cell lung cancer
     Dosage: UNKNOWN
     Dates: start: 20200918

REACTIONS (2)
  - Abdominal pain [Fatal]
  - Asthenia [Fatal]

NARRATIVE: CASE EVENT DATE: 20200927
